FAERS Safety Report 4410497-9 (Version None)
Quarter: 2004Q3

REPORT INFORMATION
  Report Type: 
  Country: None (occurrence: None)
  Receive Date: 20040726
  Receipt Date: 20040715
  Transmission Date: 20050211
  Serious: Yes (Other)
  Sender: FDA-Public Use
  Company Number: 0400028EN0020P

PATIENT
  Age: 15 Year
  Sex: Male
  Weight: 46 kg

DRUGS (2)
  1. ONCASPAR [Suspect]
     Indication: CHEMOTHERAPY
     Dosage: 3600 UNITS IM
     Route: 030
     Dates: start: 20040714
  2. VINCRISTINE [Concomitant]

REACTIONS (4)
  - ANGIONEUROTIC OEDEMA [None]
  - NASAL CONGESTION [None]
  - OXYGEN SATURATION DECREASED [None]
  - RASH [None]
